FAERS Safety Report 12346186 (Version 2)
Quarter: 2016Q2

REPORT INFORMATION
  Report Type: Spontaneous
  Country: US (occurrence: US)
  Receive Date: 20160509
  Receipt Date: 20160629
  Transmission Date: 20160815
  Serious: No
  Sender: FDA-Public Use
  Company Number: US-PFIZER INC-2016213686

PATIENT
  Age: 78 Year
  Sex: Male

DRUGS (4)
  1. LYRICA [Suspect]
     Active Substance: PREGABALIN
     Indication: NEUROPATHY PERIPHERAL
     Dosage: 100MG TWICE A DAY
  2. LYRICA [Suspect]
     Active Substance: PREGABALIN
     Indication: INJURY
     Dosage: 300 MG, DAILY (300MG A DAY)
  3. LYRICA [Suspect]
     Active Substance: PREGABALIN
     Dosage: 100MG TWICE A DAY
  4. LYRICA [Suspect]
     Active Substance: PREGABALIN
     Dosage: 50-3/DAY; 100-3/DAY; 100-2/DAY; 100-1/DAY; 100 EVERY OTHER DAY
     Dates: end: 20160501

REACTIONS (3)
  - Injury [Unknown]
  - Drug ineffective [Unknown]
  - Drug withdrawal syndrome [Unknown]
